FAERS Safety Report 12877245 (Version 1)
Quarter: 2016Q4

REPORT INFORMATION
  Report Type: Report from Study
  Country: MX (occurrence: MX)
  Receive Date: 20161024
  Receipt Date: 20161024
  Transmission Date: 20170207
  Serious: Yes (Other)
  Sender: FDA-Public Use
  Company Number: PHHY2016MX143812

PATIENT
  Sex: Male

DRUGS (1)
  1. ULTIBRO BREEZHALER [Suspect]
     Active Substance: GLYCOPYRRONIUM\INDACATEROL
     Indication: CARDIAC DISORDER
     Dosage: 1 DF (50 UG GLYCOPYRRONIUM, 110 UG INDACATEROL), UNK
     Route: 065
     Dates: end: 20161013

REACTIONS (3)
  - Product use issue [Recovered/Resolved]
  - Asphyxia [Unknown]
  - Dyspnoea [Unknown]
